FAERS Safety Report 23695785 (Version 1)
Quarter: 2024Q2

REPORT INFORMATION
  Report Type: Spontaneous
  Country: DE (occurrence: DE)
  Receive Date: 20240402
  Receipt Date: 20240402
  Transmission Date: 20240716
  Serious: Yes (Other)
  Sender: FDA-Public Use
  Company Number: DE-TEVA-VS-3175472

PATIENT
  Age: 54 Year
  Sex: Female

DRUGS (1)
  1. SULFAMETHOXAZOLE\TRIMETHOPRIM [Suspect]
     Active Substance: SULFAMETHOXAZOLE\TRIMETHOPRIM
     Indication: Product used for unknown indication
     Dosage: 800/160 MG
     Route: 048

REACTIONS (4)
  - Swollen tongue [Unknown]
  - Pharyngeal swelling [Unknown]
  - Vomiting [Unknown]
  - Drug hypersensitivity [Unknown]
